FAERS Safety Report 17999830 (Version 7)
Quarter: 2021Q2

REPORT INFORMATION
  Report Type: Spontaneous
  Country: US (occurrence: US)
  Receive Date: 20200709
  Receipt Date: 20210507
  Transmission Date: 20210717
  Serious: No
  Sender: FDA-Public Use
  Company Number: US-PFIZER INC-2020260285

PATIENT
  Age: 69 Year
  Sex: Female
  Weight: 106.59 kg

DRUGS (1)
  1. IBRANCE [Suspect]
     Active Substance: PALBOCICLIB
     Indication: BREAST CANCER METASTATIC
     Dosage: 125 MG

REACTIONS (7)
  - Sciatica [Unknown]
  - Angiopathy [Unknown]
  - Wound [Recovering/Resolving]
  - Muscle spasms [Recovered/Resolved]
  - Musculoskeletal stiffness [Unknown]
  - Mineral deficiency [Unknown]
  - Sleep deficit [Recovered/Resolved]
